FAERS Safety Report 15837541 (Version 2)
Quarter: 2019Q1

REPORT INFORMATION
  Report Type: Spontaneous
  Country: GB (occurrence: GB)
  Receive Date: 20190117
  Receipt Date: 20190212
  Transmission Date: 20190417
  Serious: Yes (Other)
  Sender: FDA-Public Use
  Company Number: GB-HIKMA PHARMACEUTICALS USA INC.-GB-H14001-19-00275

PATIENT
  Age: 71 Year
  Sex: Male
  Weight: 76.2 kg

DRUGS (4)
  1. CO-AMOXICLAV [Suspect]
     Active Substance: AMOXICILLIN\CLAVULANATE POTASSIUM
     Indication: ORCHITIS
     Route: 065
     Dates: start: 20180921
  2. CO-AMOXICLAV [Suspect]
     Active Substance: AMOXICILLIN\CLAVULANATE POTASSIUM
     Indication: ORCHITIS
     Route: 065
     Dates: start: 20181015, end: 20181022
  3. CIPROFLOXACIN. [Concomitant]
     Active Substance: CIPROFLOXACIN
     Indication: DEVICE RELATED INFECTION
     Dosage: ()
     Route: 065
     Dates: start: 20180808, end: 20180815
  4. CO-AMOXICLAV [Suspect]
     Active Substance: AMOXICILLIN\CLAVULANATE POTASSIUM
     Indication: DEVICE RELATED INFECTION
     Route: 065
     Dates: start: 20180818, end: 20180825

REACTIONS (4)
  - Pain in extremity [Unknown]
  - Osteoarthritis [Unknown]
  - Feeling hot [Recovered/Resolved]
  - Pruritus [Recovered/Resolved]

NARRATIVE: CASE EVENT DATE: 20181015
